FAERS Safety Report 23785721 (Version 1)
Quarter: 2024Q2

REPORT INFORMATION
  Report Type: Spontaneous
  Country: US (occurrence: US)
  Receive Date: 20240425
  Receipt Date: 20240425
  Transmission Date: 20240715
  Serious: No
  Sender: FDA-Public Use
  Company Number: US-BRISTOL-MYERS SQUIBB COMPANY-2024-062537

PATIENT
  Age: 63 Year
  Sex: Female

DRUGS (7)
  1. ELIQUIS [Suspect]
     Active Substance: APIXABAN
     Indication: Cardiac aneurysm
     Dosage: ONGOING
     Route: 048
     Dates: start: 20190419
  2. CAMZYOS [Concomitant]
     Active Substance: MAVACAMTEN
     Indication: Hypertrophic cardiomyopathy
     Route: 048
     Dates: start: 20240119, end: 20240214
  3. CAMZYOS [Concomitant]
     Active Substance: MAVACAMTEN
     Route: 048
     Dates: start: 20240215
  4. LOPRESSOR [Concomitant]
     Active Substance: METOPROLOL TARTRATE
     Indication: Hypertrophic cardiomyopathy
     Dosage: TABLET EXTENDED RELEASE, ONGOING
     Route: 048
     Dates: start: 20190409
  5. ESCITALOPRAM OXALATE [Concomitant]
     Active Substance: ESCITALOPRAM OXALATE
     Indication: Anxiety
     Dosage: TABLET EXTENDED RELEASE, ONGOING
     Route: 048
     Dates: start: 20230713
  6. EZETIMIBE [Concomitant]
     Active Substance: EZETIMIBE
     Indication: Hyperlipidaemia
     Dosage: TABLET EXTENDED RELEASE, ONGOING
     Route: 048
     Dates: start: 20201102
  7. METFORMIN HYDROCHLORIDE [Concomitant]
     Active Substance: METFORMIN HYDROCHLORIDE
     Indication: Glucose tolerance impaired
     Dosage: TABLET EXTENDED RELEASE, ONGOING
     Route: 048
     Dates: start: 20230823

REACTIONS (1)
  - Off label use [Unknown]
